FAERS Safety Report 7889053-6 (Version None)
Quarter: 2011Q4

REPORT INFORMATION
  Report Type: 
  Country: None (occurrence: None)
  Receive Date: 20111103
  Receipt Date: 20111021
  Transmission Date: 20120403
  Serious: No
  Sender: FDA-Public Use
  Company Number: US-B.I. PHARMACEUTICALS,INC./RIDGEFIELD-2011-BP-03032BP

PATIENT
  Sex: Female

DRUGS (6)
  1. PRADAXA [Suspect]
     Indication: ATRIAL FIBRILLATION
     Dosage: 300 MG
     Route: 048
     Dates: start: 20101101
  2. FOSAMAX [Concomitant]
     Indication: ARTHRITIS
     Dates: start: 20050101
  3. CARDIZEM [Concomitant]
     Indication: ATRIAL FIBRILLATION
  4. DIGOXIN [Concomitant]
     Indication: CARDIAC DISORDER
     Dosage: 125 MCG
     Dates: start: 20110201
  5. DIGOXIN [Concomitant]
     Indication: ATRIAL FIBRILLATION
  6. CARDIZEM [Concomitant]
     Indication: CARDIAC DISORDER
     Dosage: 120 MG
     Dates: start: 20110201

REACTIONS (7)
  - FREQUENT BOWEL MOVEMENTS [None]
  - PAIN IN EXTREMITY [None]
  - FLATULENCE [None]
  - PAIN [None]
  - HYPOAESTHESIA [None]
  - ASTHENIA [None]
  - DIARRHOEA [None]
